APPROVED DRUG PRODUCT: TAMSULOSIN HYDROCHLORIDE
Active Ingredient: TAMSULOSIN HYDROCHLORIDE
Strength: 0.4MG
Dosage Form/Route: CAPSULE;ORAL
Application: A211885 | Product #001 | TE Code: AB
Applicant: CHARTWELL RX SCIENCES LLC
Approved: Oct 17, 2019 | RLD: No | RS: No | Type: RX